FAERS Safety Report 13604521 (Version 1)
Quarter: 2017Q2

REPORT INFORMATION
  Report Type: Spontaneous
  Country: US (occurrence: US)
  Receive Date: 20170601
  Receipt Date: 20170601
  Transmission Date: 20170830
  Serious: Yes (Hospitalization)
  Sender: FDA-Public Use
  Company Number: None

PATIENT
  Age: 68 Year
  Sex: Male

DRUGS (3)
  1. REPATHA [Suspect]
     Active Substance: EVOLOCUMAB
     Indication: HYPERNATRAEMIA
     Route: 058
     Dates: start: 20170504
  2. REPATHA [Suspect]
     Active Substance: EVOLOCUMAB
     Indication: HYPERCHOLESTEROLAEMIA
     Route: 058
     Dates: start: 20170504
  3. REPATHA [Suspect]
     Active Substance: EVOLOCUMAB
     Indication: HYPEROSMOLAR STATE
     Route: 058
     Dates: start: 20170504

REACTIONS (2)
  - Cardiac operation [None]
  - Vascular graft [None]

NARRATIVE: CASE EVENT DATE: 20170507
